FAERS Safety Report 19520844 (Version 1)
Quarter: 2021Q3

REPORT INFORMATION
  Report Type: Report from Study
  Country: KR (occurrence: KR)
  Receive Date: 20210712
  Receipt Date: 20210712
  Transmission Date: 20211014
  Serious: Yes (Hospitalization, Other)
  Sender: FDA-Public Use
  Company Number: KR-GLAXOSMITHKLINE-KR2021147540

PATIENT
  Age: 51 Year
  Sex: Female
  Weight: 38.4 kg

DRUGS (9)
  1. CEFDINIR. [Concomitant]
     Active Substance: CEFDINIR
     Indication: ANAL ABSCESS
     Dosage: UNK UNK, TID
     Route: 048
     Dates: start: 20210625
  2. FLASINYL [Concomitant]
     Indication: PRODUCT USED FOR UNKNOWN INDICATION
     Dosage: UNK, TID
     Route: 048
     Dates: start: 20210625
  3. NIRAPARIB [Suspect]
     Active Substance: NIRAPARIB
     Indication: OVARIAN CANCER
     Dosage: 200 MG, QD
     Route: 048
     Dates: start: 20210428, end: 20210616
  4. NASEA [Concomitant]
     Active Substance: RAMOSETRON HYDROCHLORIDE
     Indication: PROPHYLAXIS
     Dosage: UNK
     Route: 048
     Dates: start: 20210428, end: 20210429
  5. MACPERAN [Concomitant]
     Active Substance: METOCLOPRAMIDE HYDROCHLORIDE
     Indication: PROPHYLAXIS
     Dosage: UNK, TID
     Route: 048
     Dates: start: 20210428, end: 20210502
  6. GASTER [Concomitant]
     Active Substance: FAMOTIDINE
     Indication: DYSPEPSIA
     Dosage: UNK
     Route: 048
     Dates: start: 20210525, end: 20210601
  7. MOTILIUM M [Concomitant]
     Active Substance: DOMPERIDONE MALEATE
     Indication: DYSPEPSIA
     Dosage: UNK
     Route: 048
     Dates: start: 20210525, end: 20210601
  8. GRASIN [Concomitant]
     Indication: NEUTROPENIA
     Dosage: UNK UNK, QD
     Route: 065
     Dates: start: 20210618, end: 20210618
  9. STILLEN [Concomitant]
     Indication: DYSPEPSIA
     Dosage: UNK
     Route: 048
     Dates: start: 20210525, end: 20210601

REACTIONS (1)
  - Anal abscess [Recovering/Resolving]

NARRATIVE: CASE EVENT DATE: 20210624
